FAERS Safety Report 4775593-5 (Version None)
Quarter: 2005Q3

REPORT INFORMATION
  Report Type: 
  Country: None (occurrence: None)
  Receive Date: 20050914
  Receipt Date: 20041206
  Transmission Date: 20060218
  Serious: Yes (Hospitalization)
  Sender: FDA-Public Use
  Company Number: 163-20785-04120158

PATIENT
  Age: 68 Year
  Sex: Male
  Weight: 87.0906 kg

DRUGS (1)
  1. THALOMID [Suspect]
     Indication: RENAL CELL CARCINOMA STAGE UNSPECIFIED
     Dosage: 50 MG, QHS, ORAL
     Route: 048
     Dates: start: 20040801

REACTIONS (4)
  - CONSTIPATION [None]
  - DISEASE PROGRESSION [None]
  - HAEMATOCRIT DECREASED [None]
  - HAEMOGLOBIN DECREASED [None]
